FAERS Safety Report 15988215 (Version 1)
Quarter: 2019Q1

REPORT INFORMATION
  Report Type: Spontaneous
  Country: FR (occurrence: FR)
  Receive Date: 20190221
  Receipt Date: 20190221
  Transmission Date: 20190418
  Serious: Yes (Hospitalization)
  Sender: FDA-Public Use
  Company Number: FR-SUN PHARMACEUTICAL INDUSTRIES LTD-2019RR-199665

PATIENT
  Age: 95 Year
  Sex: Male
  Weight: 78 kg

DRUGS (7)
  1. PARACETAMOL [Suspect]
     Active Substance: ACETAMINOPHEN
     Indication: PAIN
     Dosage: 2-2-2
     Route: 048
     Dates: start: 20190108, end: 20190125
  2. BISOPROLOL (FUMARATE ACIDE DE) [Concomitant]
     Active Substance: BISOPROLOL FUMARATE
     Indication: HYPERTENSION
     Dosage: 2-0-0 (POSOLOGIE MAJOREE EN DEBUT D^HOSPITALISATION)
     Route: 048
     Dates: start: 20190104, end: 20190125
  3. PREVISCAN 20 MG, COMPRIME SECABLE [Suspect]
     Active Substance: FLUINDIONE
     Indication: ATRIAL FIBRILLATION
     Dosage: 0-0-0.5
     Route: 048
     Dates: start: 20190109, end: 20190120
  4. FUMAFER 66 MG, COMPRIME PELLICULE [Concomitant]
     Active Substance: FERROUS FUMARATE
     Indication: IRON DEFICIENCY
     Dosage: 1-1-1
     Route: 048
     Dates: start: 20181231, end: 20190125
  5. SERESTA 10 MG, COMPRIME [Concomitant]
     Active Substance: OXAZEPAM
     Indication: ANXIETY DISORDER
     Dosage: 20/01/2019 A 11H46 ET 21/01/2019 A 18H23
     Route: 048
     Dates: start: 20190120, end: 20190121
  6. XATRAL 2,5 MG, COMPRIME PELLICULE [Concomitant]
     Indication: BENIGN PROSTATIC HYPERPLASIA
     Dosage: 1-1-1
     Route: 048
     Dates: start: 20190106, end: 20190125
  7. MOVICOL [Concomitant]
     Active Substance: POLYETHYLENE GLYCOL 3350\POTASSIUM CHLORIDE\SODIUM BICARBONATE\SODIUM CHLORIDE
     Indication: CONSTIPATION
     Dosage: 2 SACHETS A 13H ; IN TOTAL
     Route: 048
     Dates: start: 20190118, end: 20190125

REACTIONS (2)
  - International normalised ratio increased [Recovered/Resolved]
  - Rectal haemorrhage [Recovered/Resolved]

NARRATIVE: CASE EVENT DATE: 20190121
